FAERS Safety Report 16822383 (Version 1)
Quarter: 2019Q3

REPORT INFORMATION
  Report Type: Spontaneous
  Country: US (occurrence: US)
  Receive Date: 20190726
  Receipt Date: 20190726
  Transmission Date: 20191005
  Serious: No
  Sender: FDA-Public Use
  Company Number: None

PATIENT
  Age: 79 Year
  Sex: Male

DRUGS (8)
  1. PREDNISONE. [Concomitant]
     Active Substance: PREDNISONE
  2. ATORVASTATIN [Concomitant]
     Active Substance: ATORVASTATIN
  3. PROCHLORPERAZINE. [Concomitant]
     Active Substance: PROCHLORPERAZINE
  4. LUPRON [Concomitant]
     Active Substance: LEUPROLIDE ACETATE
  5. LYRICA [Concomitant]
     Active Substance: PREGABALIN
  6. LOSARTAN. [Concomitant]
     Active Substance: LOSARTAN
  7. ZYTIGA [Suspect]
     Active Substance: ABIRATERONE ACETATE
     Indication: PROSTATE CANCER
     Route: 048
  8. MORPHINE [Concomitant]
     Active Substance: MORPHINE

REACTIONS (1)
  - Abdominal pain upper [None]
